FAERS Safety Report 7114341-0 (Version None)
Quarter: 2010Q4

REPORT INFORMATION
  Report Type: 
  Country: None (occurrence: None)
  Receive Date: 20101119
  Receipt Date: 20101112
  Transmission Date: 20110411
  Serious: Yes (Disabling, Other)
  Sender: FDA-Public Use
  Company Number: US-PFIZER INC-2010147429

PATIENT
  Sex: Male
  Weight: 81.179 kg

DRUGS (3)
  1. GEODON [Suspect]
     Indication: ELEVATED MOOD
     Dosage: 20 MG, 2X/DAY
     Route: 048
     Dates: start: 20090101
  2. GEODON [Suspect]
     Indication: DEPRESSION
  3. ULTRAM [Concomitant]
     Dosage: UNK

REACTIONS (2)
  - BLOOD IRON DECREASED [None]
  - MYOCARDIAL INFARCTION [None]
